FAERS Safety Report 5049953-1 (Version None)
Quarter: 2006Q3

REPORT INFORMATION
  Report Type: 
  Country: None (occurrence: None)
  Receive Date: 20060706
  Receipt Date: 20060703
  Transmission Date: 20061208
  Serious: Yes (Death, Other)
  Sender: FDA-Public Use
  Company Number: USA-2006-0023486

PATIENT
  Age: 58 Year
  Sex: Female
  Weight: 136.1 kg

DRUGS (3)
  1. MORPHINE SULFATE [Suspect]
  2. BUTALBITAL [Suspect]
  3. ETHANOL (ETHANOL) [Suspect]

REACTIONS (5)
  - DRUG TOXICITY [None]
  - OVERDOSE [None]
  - SKIN DISCOLOURATION [None]
  - SKIN DISORDER [None]
  - THERAPEUTIC AGENT TOXICITY [None]
